FAERS Safety Report 6603433-8 (Version None)
Quarter: 2010Q1

REPORT INFORMATION
  Report Type: 
  Country: None (occurrence: None)
  Receive Date: 20100226
  Receipt Date: 20090512
  Transmission Date: 20100710
  Serious: No
  Sender: FDA-Public Use
  Company Number: A0784903A

PATIENT
  Sex: Female

DRUGS (2)
  1. VALTREX [Suspect]
     Indication: DRUG USE FOR UNKNOWN INDICATION
     Route: 065
  2. VICODIN [Suspect]
     Indication: DRUG USE FOR UNKNOWN INDICATION
     Route: 065

REACTIONS (2)
  - FATIGUE [None]
  - HERPES ZOSTER [None]
